FAERS Safety Report 4539959-0 (Version None)
Quarter: 2004Q4

REPORT INFORMATION
  Report Type: 
  Country: None (occurrence: None)
  Receive Date: 20041223
  Receipt Date: 20041210
  Transmission Date: 20050328
  Serious: Yes (Hospitalization, Other)
  Sender: FDA-Public Use
  Company Number: A-CH2004-05361

PATIENT
  Age: 42 Year
  Sex: Male
  Weight: 79 kg

DRUGS (6)
  1. TRACLEER [Suspect]
     Indication: PULMONARY HYPERTENSION
     Dosage: SEE IMAGE
     Route: 048
     Dates: start: 20020119, end: 20020218
  2. TRACLEER [Suspect]
     Indication: PULMONARY HYPERTENSION
     Dosage: SEE IMAGE
     Route: 048
     Dates: start: 20020219, end: 20041208
  3. TRACLEER [Suspect]
     Indication: PULMONARY HYPERTENSION
     Dosage: SEE IMAGE
     Route: 048
     Dates: start: 20041209
  4. BERAPROST (BERAPROST) [Concomitant]
  5. DIURETICS [Concomitant]
  6. PHENPROCOUMON (PHENPROCOUMON) [Concomitant]

REACTIONS (15)
  - ALANINE AMINOTRANSFERASE INCREASED [None]
  - ASPARTATE AMINOTRANSFERASE INCREASED [None]
  - BUNDLE BRANCH BLOCK RIGHT [None]
  - CHEST PAIN [None]
  - CONDITION AGGRAVATED [None]
  - GENERAL PHYSICAL HEALTH DETERIORATION [None]
  - INFLAMMATION [None]
  - LOBAR PNEUMONIA [None]
  - ORAL FUNGAL INFECTION [None]
  - PLEURISY [None]
  - PULMONARY ARTERIAL PRESSURE INCREASED [None]
  - PULMONARY VASCULAR RESISTANCE ABNORMALITY [None]
  - RESPIRATORY FAILURE [None]
  - RIGHT VENTRICULAR FAILURE [None]
  - SPUTUM CULTURE POSITIVE [None]
